FAERS Safety Report 13760039 (Version 9)
Quarter: 2020Q3

REPORT INFORMATION
  Report Type: Report from Study
  Country: BR (occurrence: BR)
  Receive Date: 20170717
  Receipt Date: 20200908
  Transmission Date: 20201102
  Serious: Yes (Hospitalization, Other)
  Sender: FDA-Public Use
  Company Number: PHHY2017BR059556

PATIENT
  Sex: Female
  Weight: 88 kg

DRUGS (11)
  1. SANDOSTATIN LAR DEPOT [Suspect]
     Active Substance: OCTREOTIDE ACETATE
     Dosage: 20 MG, Q2MO
     Route: 030
     Dates: start: 20200707
  2. SANDOSTATIN LAR DEPOT [Suspect]
     Active Substance: OCTREOTIDE ACETATE
     Dosage: 20 MG, EVERY 45 DAYS
     Route: 030
     Dates: start: 20090101
  3. SANDOSTATIN LAR DEPOT [Suspect]
     Active Substance: OCTREOTIDE ACETATE
     Dosage: 20 MG, EVERY 3 MONTHS
     Route: 030
  4. SANDOSTATIN LAR DEPOT [Suspect]
     Active Substance: OCTREOTIDE ACETATE
     Dosage: APPLYING EVERY 2 MONTHS (FOR OVER 1 YEAR)
     Route: 065
     Dates: start: 201908
  5. SANDOSTATIN LAR DEPOT [Suspect]
     Active Substance: OCTREOTIDE ACETATE
     Indication: ACROMEGALY
     Dosage: 10 MG
     Route: 065
  6. SANDOSTATIN LAR DEPOT [Suspect]
     Active Substance: OCTREOTIDE ACETATE
     Dosage: 20 MG, UNK (EVERY 2 MONTHS)
     Route: 030
  7. SANDOSTATIN LAR DEPOT [Suspect]
     Active Substance: OCTREOTIDE ACETATE
     Dosage: 20 MG, Q2MO
     Route: 030
     Dates: start: 20191002
  8. SANDOSTATIN LAR DEPOT [Suspect]
     Active Substance: OCTREOTIDE ACETATE
     Dosage: 20 MG, EVERY 60 DAYS
     Route: 030
  9. ENALAPRIL [Concomitant]
     Active Substance: ENALAPRIL
     Indication: HYPERTENSION
     Dosage: UNK UNK, QD
     Route: 048
  10. SANDOSTATIN LAR DEPOT [Suspect]
     Active Substance: OCTREOTIDE ACETATE
     Dosage: 20 MG (EVERY 60 DAYS, FOR OVER 1 YEAR)
     Route: 030
     Dates: start: 2018
  11. PURAN [Concomitant]
     Active Substance: LEVOTHYROXINE SODIUM
     Indication: THYROID DISORDER
     Dosage: 25 MG, QD
     Route: 048
     Dates: start: 2009

REACTIONS (28)
  - Cough [Unknown]
  - Lymphadenitis [Recovered/Resolved]
  - Weight increased [Unknown]
  - Diarrhoea [Recovering/Resolving]
  - Influenza [Recovering/Resolving]
  - Malaise [Not Recovered/Not Resolved]
  - Clavicle fracture [Recovered/Resolved]
  - Weight decreased [Unknown]
  - Inappropriate schedule of product administration [Not Recovered/Not Resolved]
  - Gait inability [Unknown]
  - Gait disturbance [Unknown]
  - Headache [Unknown]
  - Feeding disorder [Unknown]
  - Asthenia [Unknown]
  - Pyrexia [Unknown]
  - Cataract [Unknown]
  - Chest pain [Unknown]
  - Syncope [Unknown]
  - Road traffic accident [Recovered/Resolved]
  - Peripheral swelling [Recovering/Resolving]
  - Dysstasia [Unknown]
  - Rheumatic disorder [Unknown]
  - Pain [Unknown]
  - Pneumonia [Recovering/Resolving]
  - Gallbladder disorder [Recovering/Resolving]
  - Movement disorder [Unknown]
  - Pain in extremity [Not Recovered/Not Resolved]
  - Arthralgia [Recovering/Resolving]

NARRATIVE: CASE EVENT DATE: 2018
